FAERS Safety Report 24112761 (Version 1)
Quarter: 2024Q3

REPORT INFORMATION
  Report Type: Spontaneous
  Country: US (occurrence: None)
  Receive Date: 20240719
  Receipt Date: 20240719
  Transmission Date: 20241016
  Serious: Yes (Hospitalization, Other)
  Sender: ASTRAZENECA
  Company Number: 2024A160293

PATIENT

DRUGS (3)
  1. FASENRA [Suspect]
     Active Substance: BENRALIZUMAB
     Route: 058
  2. CEPHALEXIN [Concomitant]
     Active Substance: CEPHALEXIN
  3. BENADRYL [Concomitant]
     Active Substance: DIPHENHYDRAMINE HYDROCHLORIDE
     Dosage: BENADRYL SHOTS 30

REACTIONS (10)
  - Loss of consciousness [Unknown]
  - Injection site mass [Unknown]
  - Urticaria [Unknown]
  - Upper respiratory tract infection [Unknown]
  - Dizziness [Unknown]
  - Peripheral swelling [Unknown]
  - Epistaxis [Unknown]
  - Adverse drug reaction [Unknown]
  - Product dose omission issue [Unknown]
  - Product use issue [Unknown]
